FAERS Safety Report 9225561 (Version 1)
Quarter: 2013Q2

REPORT INFORMATION
  Report Type: Report from Study
  Country: IT (occurrence: IT)
  Receive Date: 20130411
  Receipt Date: 20130411
  Transmission Date: 20140414
  Serious: Yes (Death)
  Sender: FDA-Public Use
  Company Number: IT-ROCHE-1210438

PATIENT
  Age: 74 Year
  Sex: Male

DRUGS (4)
  1. ALTEPLASE [Suspect]
     Indication: BASILAR ARTERY OCCLUSION
     Route: 013
  2. SALICYLIC ACID [Suspect]
     Indication: PRODUCT USED FOR UNKNOWN INDICATION
     Route: 065
  3. TICLOPIDINE [Suspect]
     Indication: PRODUCT USED FOR UNKNOWN INDICATION
     Route: 065
  4. HEPARIN [Suspect]
     Indication: BASILAR ARTERY OCCLUSION
     Dosage: DEPENDING ON CT RESULTS: 1 MG /KG OR 0.5 MG/KG AND THEN PROGRESSIVELY REDUCED AND SUSPENDED THE FOLL
     Route: 065

REACTIONS (1)
  - Death [Fatal]
